FAERS Safety Report 7463403-7 (Version None)
Quarter: 2011Q2

REPORT INFORMATION
  Report Type: 
  Country: None (occurrence: None)
  Receive Date: 20110506
  Receipt Date: 20110429
  Transmission Date: 20111010
  Serious: Yes (Death)
  Sender: FDA-Public Use
  Company Number: A0926093A

PATIENT
  Age: 54 Year
  Sex: Male

DRUGS (1)
  1. HYCAMTIN [Suspect]
     Route: 065
     Dates: start: 20110321, end: 20110429

REACTIONS (1)
  - DEATH [None]
